FAERS Safety Report 10994759 (Version 1)
Quarter: 2015Q2

REPORT INFORMATION
  Report Type: Spontaneous
  Country: US (occurrence: US)
  Receive Date: 20150407
  Receipt Date: 20150407
  Transmission Date: 20150821
  Serious: No
  Sender: FDA-Public Use
  Company Number: US-ASTRAZENECA-2015SE32007

PATIENT
  Age: 19459 Day
  Sex: Female
  Weight: 102.1 kg

DRUGS (11)
  1. ATENOLOL. [Suspect]
     Active Substance: ATENOLOL
     Indication: HYPERTENSION
     Route: 065
  2. METFORMIN [Concomitant]
     Active Substance: METFORMIN HYDROCHLORIDE
     Indication: DIABETES MELLITUS
     Dates: start: 2010
  3. STEROIDS [Concomitant]
     Active Substance: UNSPECIFIED INGREDIENT
  4. PULMICORT FLEXHALER [Suspect]
     Active Substance: BUDESONIDE
     Indication: ASTHMA
     Dosage: 180 MCG 2 PUFFS ONCE DAILY
     Route: 055
     Dates: start: 20150328
  5. POTASSIUM PILL [Concomitant]
     Indication: ELECTROLYTE SUBSTITUTION THERAPY
  6. PULMICORT FLEXHALER [Suspect]
     Active Substance: BUDESONIDE
     Indication: ASTHMA
     Dosage: AS NEEDED
     Route: 055
  7. PULMICORT FLEXHALER [Suspect]
     Active Substance: BUDESONIDE
     Indication: MULTIPLE ALLERGIES
     Dosage: 180 MCG 2 PUFFS ONCE DAILY
     Route: 055
     Dates: start: 2013
  8. PULMICORT FLEXHALER [Suspect]
     Active Substance: BUDESONIDE
     Indication: MULTIPLE ALLERGIES
     Dosage: AS NEEDED
     Route: 055
  9. WATER PILL [Concomitant]
     Active Substance: UNSPECIFIED INGREDIENT
     Indication: DIURETIC THERAPY
  10. PULMICORT FLEXHALER [Suspect]
     Active Substance: BUDESONIDE
     Indication: MULTIPLE ALLERGIES
     Dosage: 180 MCG 2 PUFFS ONCE DAILY
     Route: 055
     Dates: start: 20150328
  11. PULMICORT FLEXHALER [Suspect]
     Active Substance: BUDESONIDE
     Indication: ASTHMA
     Dosage: 180 MCG 2 PUFFS ONCE DAILY
     Route: 055
     Dates: start: 2013

REACTIONS (4)
  - Feeling abnormal [Unknown]
  - Intentional product misuse [Unknown]
  - Drug dose omission [Unknown]
  - Off label use [Unknown]

NARRATIVE: CASE EVENT DATE: 20150329
